FAERS Safety Report 8305263-8 (Version None)
Quarter: 2012Q2

REPORT INFORMATION
  Report Type: 
  Country: None (occurrence: None)
  Receive Date: 20120423
  Receipt Date: 20120404
  Transmission Date: 20120825
  Serious: No
  Sender: FDA-Public Use
  Company Number: US-JNJFOC-20120403252

PATIENT
  Sex: Female

DRUGS (9)
  1. INVEGA SUSTENNA [Suspect]
     Indication: SCHIZOPHRENIA
     Dosage: ONCE
     Route: 030
     Dates: start: 20120326
  2. FUROSEMIDE [Concomitant]
     Route: 048
  3. HALDOL [Concomitant]
     Indication: SCHIZOPHRENIA
     Route: 065
  4. HYDROCODONE BITARTRATE AND ACETAMINOPHEN [Concomitant]
     Dosage: 5 MG/500 MG
     Route: 048
  5. INVEGA SUSTENNA [Suspect]
     Route: 030
     Dates: start: 20120320
  6. OLANZAPINE [Concomitant]
     Route: 048
  7. BENZTROPINE MESYLATE [Concomitant]
     Indication: SCHIZOPHRENIA
     Route: 048
  8. LORAZEPAM [Concomitant]
     Dosage: 1 TO 2 MG
     Route: 048
  9. HYDROXYZINE PAMOATE [Concomitant]
     Route: 065

REACTIONS (2)
  - DEVICE LEAKAGE [None]
  - ACCIDENTAL EXPOSURE [None]
